FAERS Safety Report 15858377 (Version 1)
Quarter: 2018Q4

REPORT INFORMATION
  Report Type: Spontaneous
  Country: US (occurrence: US)
  Receive Date: 20181228
  Receipt Date: 20181228
  Transmission Date: 20190205
  Serious: Yes (Hospitalization)
  Sender: FDA-Public Use
  Company Number: None

PATIENT
  Age: 73 Year
  Sex: Male
  Weight: 87.5 kg

DRUGS (2)
  1. AZACITIDINE. [Suspect]
     Active Substance: AZACITIDINE
     Indication: ACUTE MONOCYTIC LEUKAEMIA
     Route: 042
     Dates: start: 20180702
  2. PEMBROLUZIMAB [Suspect]
     Active Substance: PEMBROLIZUMAB
     Dosage: ?          OTHER FREQUENCY:Q4WEEKS;?
     Route: 042
     Dates: start: 20180716

REACTIONS (2)
  - Subdural haematoma [None]
  - Therapy cessation [None]

NARRATIVE: CASE EVENT DATE: 20181224
